FAERS Safety Report 11493278 (Version 1)
Quarter: 2015Q3

REPORT INFORMATION
  Report Type: Spontaneous
  Country: US (occurrence: None)
  Receive Date: 20150910
  Receipt Date: 20150910
  Transmission Date: 20151125
  Serious: Yes (Life-Threatening, Hospitalization)
  Sender: FDA-Public Use
  Company Number: None

PATIENT
  Age: 50 Year
  Sex: Female
  Weight: 50 kg

DRUGS (1)
  1. CEFOTETAN [Suspect]
     Active Substance: CEFOTETAN DISODIUM
     Dosage: 2GM PREOP ONCE INTRAVENOUS
     Route: 042

REACTIONS (2)
  - Anaphylactic shock [None]
  - Cardiac arrest [None]

NARRATIVE: CASE EVENT DATE: 20150707
